FAERS Safety Report 4442486-2 (Version None)
Quarter: 2004Q3

REPORT INFORMATION
  Report Type: 
  Country: None (occurrence: None)
  Receive Date: 20040903
  Receipt Date: 20040707
  Transmission Date: 20050211
  Serious: Yes (Other)
  Sender: FDA-Public Use
  Company Number: 2004UW14052

PATIENT
  Age: 38 Year
  Sex: Male
  Weight: 136.0791 kg

DRUGS (3)
  1. CRESTOR [Suspect]
     Dosage: 10 MG QD PO
     Route: 048
     Dates: start: 20040201
  2. GLUCOVANCE [Concomitant]
  3. LISINOPRIL [Concomitant]

REACTIONS (2)
  - MIGRAINE [None]
  - MYOPATHY [None]
